FAERS Safety Report 4915216-5 (Version None)
Quarter: 2006Q1

REPORT INFORMATION
  Report Type: 
  Country: None (occurrence: None)
  Receive Date: 20060216
  Receipt Date: 20060216
  Transmission Date: 20060701
  Serious: Yes (Hospitalization)
  Sender: FDA-Public Use
  Company Number: None

PATIENT
  Sex: Male
  Weight: 72.1219 kg

DRUGS (3)
  1. FLUOROURACIL [Suspect]
     Indication: COLON CANCER
     Dosage: 1 WEEK PRIOR TO ADMISSION
  2. LOMOTIL [Concomitant]
  3. FLAGYL [Concomitant]

REACTIONS (2)
  - DIARRHOEA [None]
  - THERAPEUTIC RESPONSE DECREASED [None]
